FAERS Safety Report 4309378-0 (Version None)
Quarter: 2004Q1

REPORT INFORMATION
  Report Type: 
  Country: None (occurrence: None)
  Receive Date: 20040302
  Receipt Date: 20040223
  Transmission Date: 20041129
  Serious: Yes (Hospitalization)
  Sender: FDA-Public Use
  Company Number: CH-ROCHE-359581

PATIENT
  Age: 68 Year
  Sex: Female
  Weight: 66.9 kg

DRUGS (5)
  1. PEG-INTERFERON ALFA 2A (RO 25-8310) [Suspect]
     Route: 058
     Dates: start: 20011107, end: 20020215
  2. RIBAVIRIN [Suspect]
     Route: 048
     Dates: start: 20011107, end: 20020215
  3. INSULIN MIXTARD [Concomitant]
  4. ZYRTEC [Concomitant]
     Dates: start: 20020225
  5. ELOCOM [Concomitant]

REACTIONS (1)
  - DERMATITIS CONTACT [None]
